FAERS Safety Report 22622700 (Version 1)
Quarter: 2023Q2

REPORT INFORMATION
  Report Type: Report from Study
  Country: US (occurrence: US)
  Receive Date: 20230621
  Receipt Date: 20230621
  Transmission Date: 20230722
  Serious: Yes (Other)
  Sender: FDA-Public Use
  Company Number: US-ABBVIE-4736990

PATIENT
  Sex: Female

DRUGS (3)
  1. HUMIRA [Suspect]
     Active Substance: ADALIMUMAB
     Indication: Rheumatoid arthritis
     Dosage: LAST ADMIN DATE: 2023
     Route: 058
     Dates: start: 20230328
  2. HUMIRA [Suspect]
     Active Substance: ADALIMUMAB
     Dosage: LAST ADMIN DATE: 2023
     Route: 058
     Dates: start: 20230618
  3. HUMIRA [Suspect]
     Active Substance: ADALIMUMAB
     Dosage: LAST ADMIN DATE: 2023
     Route: 058
     Dates: start: 20230203

REACTIONS (8)
  - Macular degeneration [Not Recovered/Not Resolved]
  - Rheumatoid arthritis [Recovering/Resolving]
  - Blood iron decreased [Unknown]
  - Full blood count decreased [Not Recovered/Not Resolved]
  - Asthenia [Unknown]
  - Sciatic nerve neuropathy [Not Recovered/Not Resolved]
  - Muscle strain [Unknown]
  - Stress [Unknown]

NARRATIVE: CASE EVENT DATE: 20230101
